FAERS Safety Report 18718213 (Version 2)
Quarter: 2021Q1

REPORT INFORMATION
  Report Type: Spontaneous
  Country: DE (occurrence: DE)
  Receive Date: 20210108
  Receipt Date: 20210223
  Transmission Date: 20210419
  Serious: Yes (Other)
  Sender: FDA-Public Use
  Company Number: DE-PFIZER INC-2021007254

PATIENT
  Age: 67 Year
  Sex: Male
  Weight: 90 kg

DRUGS (12)
  1. PREGABALIN. [Suspect]
     Active Substance: PREGABALIN
     Dosage: 400 MG, 1X/DAY
     Route: 048
  2. NOVAMINSULFON [Suspect]
     Active Substance: METAMIZOLE
     Dosage: 500 MG, AS NEEDED (2 TABLETS AS NEEDED/NECESSARY)
     Route: 048
  3. PREGABALIN. [Suspect]
     Active Substance: PREGABALIN
     Indication: PAIN
     Dosage: 600 MG, 1X/DAY
     Route: 048
  4. CLEXANE [Concomitant]
     Active Substance: ENOXAPARIN SODIUM
     Dosage: 0.4 ML, 1X/DAY
     Dates: start: 20190918, end: 20190920
  5. FOLIC ACID. [Concomitant]
     Active Substance: FOLIC ACID
     Dosage: 5 MG, 1X/DAY
     Route: 048
  6. PRIVIGEN [Suspect]
     Active Substance: HUMAN IMMUNOGLOBULIN G
     Indication: POLYNEUROPATHY
     Dosage: 50 G, 1X/DAY (5X10G)
     Route: 042
     Dates: start: 20190918, end: 20190920
  7. ASA [Concomitant]
     Active Substance: ASPIRIN
     Dosage: 100 MG, 1X/DAY
     Route: 048
  8. MOVICOL [Concomitant]
     Active Substance: POLYETHYLENE GLYCOL 3350\POTASSIUM CHLORIDE\SODIUM BICARBONATE\SODIUM CHLORIDE
     Dosage: 1 SACHET, QD
  9. VITAMIN B1 [Concomitant]
     Active Substance: THIAMINE HYDROCHLORIDE
     Dosage: 100 MG, 1X/DAY
     Route: 048
  10. PANTOPRAZOLE [Concomitant]
     Active Substance: PANTOPRAZOLE
     Dosage: 40 MG, 1X/DAY
     Route: 048
  11. PREGABALIN. [Suspect]
     Active Substance: PREGABALIN
     Indication: NEURALGIA
     Dosage: 300 MG, 1X/DAY
  12. ASPIRIN. [Concomitant]
     Active Substance: ASPIRIN
     Dosage: UNK, QD (LONG TERM MEDICATION)

REACTIONS (6)
  - Drug ineffective [Recovering/Resolving]
  - Thrombocytopenia [Unknown]
  - Leukopenia [Unknown]
  - Polyneuropathy [Unknown]
  - Off label use [Unknown]
  - Neuralgia [Recovering/Resolving]

NARRATIVE: CASE EVENT DATE: 20190918
